FAERS Safety Report 18551946 (Version 1)
Quarter: 2020Q4

REPORT INFORMATION
  Report Type: Spontaneous
  Country: US (occurrence: US)
  Receive Date: 20201126
  Receipt Date: 20201126
  Transmission Date: 20210114
  Serious: No
  Sender: FDA-Public Use
  Company Number: US-SA-2020SA335955

PATIENT

DRUGS (2)
  1. DUPIXENT [Suspect]
     Active Substance: DUPILUMAB
     Dosage: 300 MG, QOW
     Route: 058
     Dates: start: 2020
  2. DUPIXENT [Suspect]
     Active Substance: DUPILUMAB
     Indication: DERMATITIS ATOPIC
     Dosage: 600 MG, 1X
     Route: 058
     Dates: start: 2020, end: 2020

REACTIONS (11)
  - Skin disorder [Unknown]
  - Stress [Unknown]
  - Skin exfoliation [Unknown]
  - Paraesthesia [Unknown]
  - Feeling hot [Unknown]
  - Dermatitis atopic [Unknown]
  - Swelling [Unknown]
  - Skin fissures [Unknown]
  - Erythema [Unknown]
  - Pain of skin [Unknown]
  - Dry skin [Unknown]

NARRATIVE: CASE EVENT DATE: 2020
